FAERS Safety Report 12698800 (Version 1)
Quarter: 2016Q3

REPORT INFORMATION
  Report Type: Report from Study
  Country: US (occurrence: US)
  Receive Date: 20160830
  Receipt Date: 20160830
  Transmission Date: 20161109
  Serious: Yes (Life-Threatening, Hospitalization)
  Sender: FDA-Public Use
  Company Number: US-PFIZER INC-2008044158

PATIENT
  Age: 45 Year
  Sex: Male
  Weight: 101.15 kg

DRUGS (13)
  1. RAMIPRIL. [Concomitant]
     Active Substance: RAMIPRIL
     Dosage: 1 TAB,QD
     Route: 048
     Dates: start: 200701
  2. ROSUVASTATIN. [Concomitant]
     Active Substance: ROSUVASTATIN
     Route: 048
     Dates: start: 200701
  3. TRAZODONE [Concomitant]
     Active Substance: TRAZODONE HYDROCHLORIDE
     Dosage: 1 TAB,QHS
     Route: 048
     Dates: start: 20070830, end: 20080522
  4. IBUPROFEN. [Suspect]
     Active Substance: IBUPROFEN
     Indication: RHEUMATOID ARTHRITIS
  5. SIMVASTATIN. [Concomitant]
     Active Substance: SIMVASTATIN
     Dosage: DAILY
     Route: 048
     Dates: start: 200701
  6. NEXIUM [Concomitant]
     Active Substance: ESOMEPRAZOLE MAGNESIUM
     Route: 048
     Dates: start: 20070825
  7. BYETTA [Concomitant]
     Active Substance: EXENATIDE
     Route: 058
     Dates: start: 20071017
  8. ACETYLSALICYLIC ACID [Concomitant]
     Active Substance: ASPIRIN
     Route: 048
     Dates: start: 2004
  9. EXENATIDE [Concomitant]
     Active Substance: EXENATIDE
     Dosage: TWICE DAILY
     Dates: start: 20071017, end: 20080515
  10. IBUPROFEN. [Suspect]
     Active Substance: IBUPROFEN
     Indication: OSTEOARTHRITIS
     Dosage: 0 MG, UNK
     Route: 048
     Dates: start: 20070825, end: 20080520
  11. HYDROCODONE [Concomitant]
     Active Substance: HYDROCODONE
     Dosage: 1 TAB,PRN
     Route: 048
     Dates: start: 20080415, end: 20080520
  12. MINERAL OIL EMULSION [Concomitant]
     Active Substance: MINERAL OIL EMULSION
     Dosage: 1 TEASPOON,DAILY
     Route: 048
     Dates: start: 20080422, end: 20080422
  13. LANTUS [Concomitant]
     Active Substance: INSULIN GLARGINE
     Route: 058
     Dates: start: 2005

REACTIONS (2)
  - Exostosis [Recovered/Resolved]
  - Myocardial infarction [Recovered/Resolved]

NARRATIVE: CASE EVENT DATE: 20080415
